FAERS Safety Report 8903973 (Version 1)
Quarter: 2012Q4

REPORT INFORMATION
  Report Type: 
  Country: US (occurrence: US)
  Receive Date: 20121113
  Receipt Date: 20121113
  Transmission Date: 20130627
  Serious: No
  Sender: FDA-Public Use
  Company Number: US-AMGEN-USASP2012009714

PATIENT
  Age: 47 Year
  Sex: Female
  Weight: 53.06 kg

DRUGS (9)
  1. ENBREL [Suspect]
     Indication: RHEUMATOID ARTHRITIS
     Dosage: 50 mg, qwk
  2. KLONOPIN [Concomitant]
  3. SOMA [Concomitant]
  4. PREDNISONE [Concomitant]
  5. LYRICA [Concomitant]
  6. CYCLOBENZAPRINE [Concomitant]
  7. PRAZOSIN [Concomitant]
  8. OXYCODONE [Concomitant]
  9. DICLOFENAC [Concomitant]

REACTIONS (1)
  - Injection site bruising [Unknown]
